FAERS Safety Report 8834022 (Version 1)
Quarter: 2012Q4

REPORT INFORMATION
  Report Type: 
  Country: IT (occurrence: IT)
  Receive Date: 20121010
  Receipt Date: 20121010
  Transmission Date: 20130627
  Serious: Yes (Hospitalization)
  Sender: FDA-Public Use
  Company Number: PHHY2012IT087229

PATIENT
  Age: 87 Year
  Sex: Female

DRUGS (8)
  1. AMOXICILLIN + CLAVULANATE POTASSIUM [Suspect]
     Indication: INJURY
     Dosage: 2 g, daily
     Route: 048
     Dates: start: 20120919, end: 20120922
  2. CARDURA [Concomitant]
  3. LANOXIN [Concomitant]
  4. TRIATEC HCT [Concomitant]
  5. LASIX [Concomitant]
  6. ZYLORIC [Concomitant]
  7. CARDIOASPIRIN [Concomitant]
  8. GLICLAZIDE [Concomitant]

REACTIONS (3)
  - Blood glucose increased [Recovered/Resolved]
  - Eosinophil count increased [Recovered/Resolved]
  - Urticaria [Recovered/Resolved]
